FAERS Safety Report 6945244-X (Version None)
Quarter: 2010Q3

REPORT INFORMATION
  Report Type: 
  Country: None (occurrence: None)
  Receive Date: 20100827
  Receipt Date: 20100621
  Transmission Date: 20110219
  Serious: No
  Sender: FDA-Public Use
  Company Number: US-KINGPHARMUSA00001-K201000784

PATIENT
  Age: 88 Year
  Sex: Female
  Weight: 62.585 kg

DRUGS (7)
  1. FLECTOR [Suspect]
     Indication: MYALGIA
     Dosage: 1 PATCH, BID (ON FOR 6H AND OFF FOR 6H)
     Route: 061
     Dates: start: 20100601, end: 20100620
  2. FLECTOR [Suspect]
     Indication: MUSCLE SPASMS
  3. FLECTOR [Suspect]
     Indication: PAIN IN EXTREMITY
  4. FLECTOR [Suspect]
     Indication: ARTHRALGIA
  5. VITAMIN D [Concomitant]
     Dosage: UNK
  6. ASCORBIC ACID [Concomitant]
     Dosage: UNK
  7. VITAMIN E [Concomitant]
     Dosage: UNK

REACTIONS (9)
  - ABNORMAL FAECES [None]
  - BLOOD COUNT ABNORMAL [None]
  - DIARRHOEA [None]
  - FATIGUE [None]
  - NASAL DISCOMFORT [None]
  - NERVOUSNESS [None]
  - PAROSMIA [None]
  - RESTLESSNESS [None]
  - THROAT IRRITATION [None]
